FAERS Safety Report 21074956 (Version 1)
Quarter: 2022Q3

REPORT INFORMATION
  Report Type: Spontaneous
  Country: US (occurrence: US)
  Receive Date: 20220713
  Receipt Date: 20220713
  Transmission Date: 20221027
  Serious: No
  Sender: FDA-Public Use
  Company Number: US-JNJFOC-20220708676

PATIENT
  Sex: Male
  Weight: 74.910 kg

DRUGS (4)
  1. HALDOL DECANOATE [Suspect]
     Active Substance: HALOPERIDOL DECANOATE
     Indication: Schizophrenia
     Route: 042
     Dates: start: 1992, end: 202001
  2. HALDOL DECANOATE [Suspect]
     Active Substance: HALOPERIDOL DECANOATE
     Route: 042
  3. HALDOL DECANOATE [Suspect]
     Active Substance: HALOPERIDOL DECANOATE
     Route: 042
  4. HALDOL DECANOATE [Suspect]
     Active Substance: HALOPERIDOL DECANOATE
     Route: 042

REACTIONS (7)
  - Somnolence [Unknown]
  - Restlessness [Unknown]
  - Agitation [Unknown]
  - Confusional state [Unknown]
  - Amnesia [Unknown]
  - Injection site pain [Unknown]
  - Off label use [Unknown]
